FAERS Safety Report 23068288 (Version 2)
Quarter: 2023Q4

REPORT INFORMATION
  Report Type: Report from Study
  Country: CA (occurrence: CA)
  Receive Date: 20231016
  Receipt Date: 20231201
  Transmission Date: 20240110
  Serious: Yes (Other)
  Sender: FDA-Public Use
  Company Number: CA-002147023-NVSC2023CA140425

PATIENT
  Sex: Female

DRUGS (1)
  1. HYRIMOZ [Suspect]
     Active Substance: ADALIMUMAB-ADAZ
     Indication: Ankylosing spondylitis
     Dosage: 40 MG
     Route: 058
     Dates: start: 20230303

REACTIONS (8)
  - Uveitis [Unknown]
  - Immunosuppression [Unknown]
  - Back pain [Unknown]
  - Head discomfort [Unknown]
  - Product dose omission issue [Unknown]
  - Influenza [Unknown]
  - Pain [Unknown]
  - Drug ineffective [Unknown]
